FAERS Safety Report 25463737 (Version 1)
Quarter: 2025Q2

REPORT INFORMATION
  Report Type: Spontaneous
  Country: CZ (occurrence: CZ)
  Receive Date: 20250621
  Receipt Date: 20250621
  Transmission Date: 20250717
  Serious: Yes (Hospitalization, Other)
  Sender: NOVITIUM PHARMA
  Company Number: CZ-NOVITIUMPHARMA-2025CZNVP01388

PATIENT
  Age: 35 Year
  Sex: Male

DRUGS (4)
  1. ACYCLOVIR [Suspect]
     Active Substance: ACYCLOVIR
     Indication: Varicella
  2. PREDNISONE [Suspect]
     Active Substance: PREDNISONE
     Indication: Crohn^s disease
  3. AZATHIOPRINE [Concomitant]
     Active Substance: AZATHIOPRINE
     Indication: Crohn^s disease
  4. Nadroparin-calcium [Concomitant]
     Indication: Product used for unknown indication

REACTIONS (2)
  - Hepatorenal syndrome [Unknown]
  - Herpes zoster disseminated [Recovering/Resolving]
